FAERS Safety Report 14818734 (Version 2)
Quarter: 2018Q2

REPORT INFORMATION
  Report Type: Spontaneous
  Country: US (occurrence: US)
  Receive Date: 20180427
  Receipt Date: 20180501
  Transmission Date: 20180711
  Serious: No
  Sender: FDA-Public Use
  Company Number: US-PFIZER INC-2018172037

PATIENT
  Sex: Male

DRUGS (1)
  1. ZITHROMAX [Suspect]
     Active Substance: AZITHROMYCIN DIHYDRATE
     Dosage: UNK

REACTIONS (5)
  - Skin exfoliation [Unknown]
  - Skin disorder [Unknown]
  - Ocular icterus [Unknown]
  - Hepatic enzyme increased [Unknown]
  - Skin discolouration [Unknown]
